FAERS Safety Report 13734442 (Version 1)
Quarter: 2017Q3

REPORT INFORMATION
  Report Type: Report from Study
  Country: US (occurrence: US)
  Receive Date: 20170709
  Receipt Date: 20170709
  Transmission Date: 20171127
  Serious: Yes (Other)
  Sender: FDA-Public Use
  Company Number: US-AMGEN-USASL2017101049

PATIENT
  Age: 40 Year
  Sex: Male

DRUGS (5)
  1. VALSARTAN. [Concomitant]
     Active Substance: VALSARTAN
  2. PAROXETINE. [Concomitant]
     Active Substance: PAROXETINE
  3. METFORMIN [Concomitant]
     Active Substance: METFORMIN HYDROCHLORIDE
  4. NIFEDIPINE. [Concomitant]
     Active Substance: NIFEDIPINE
  5. REPATHA [Suspect]
     Active Substance: EVOLOCUMAB
     Indication: HYPERCHOLESTEROLAEMIA
     Dosage: 140 MG, UNK
     Route: 065

REACTIONS (3)
  - Depressed mood [Unknown]
  - Nervousness [Unknown]
  - Facial paralysis [Recovering/Resolving]
